FAERS Safety Report 10195633 (Version 2)
Quarter: 2016Q4

REPORT INFORMATION
  Report Type: Report from Study
  Country: IT (occurrence: IT)
  Receive Date: 20140527
  Receipt Date: 20161014
  Transmission Date: 20170206
  Serious: Yes (Hospitalization)
  Sender: FDA-Public Use
  Company Number: IT-ROCHE-1407542

PATIENT
  Age: 40 Year
  Sex: Female
  Weight: 72 kg

DRUGS (11)
  1. FLUOROURACIL. [Suspect]
     Active Substance: FLUOROURACIL
     Indication: COLORECTAL CANCER METASTATIC
     Dosage: LATEST DOSE PRIOR TO SEA: 09/MAY/2014
     Route: 042
     Dates: start: 20140507, end: 20140520
  2. FLUOROURACIL. [Suspect]
     Active Substance: FLUOROURACIL
     Route: 042
     Dates: start: 20140604
  3. PENTAZOLE [Concomitant]
     Route: 065
     Dates: start: 20140506
  4. OXALIPLATIN. [Suspect]
     Active Substance: OXALIPLATIN
     Indication: COLORECTAL CANCER METASTATIC
     Dosage: DOSAGE FORM: 500 ML, 5%
     Route: 042
     Dates: start: 20140507, end: 20140520
  5. BEVACIZUMAB [Suspect]
     Active Substance: BEVACIZUMAB
     Indication: COLORECTAL CANCER METASTATIC
     Dosage: DOSAGE FORM; 100 ML S.F , LATEST DOSE PRIOR TO SAE: 07/MAY/2014
     Route: 042
     Dates: start: 20140507, end: 20140520
  6. BEVACIZUMAB [Suspect]
     Active Substance: BEVACIZUMAB
     Route: 042
     Dates: start: 20140604
  7. TAPENTADOL [Concomitant]
     Active Substance: TAPENTADOL
     Route: 065
     Dates: start: 20140506, end: 20140520
  8. NALOXONE/OXYCODONE HYDROCHLORIDE [Concomitant]
     Route: 065
     Dates: start: 20140520
  9. LEVOFLOXACIN. [Concomitant]
     Active Substance: LEVOFLOXACIN
     Route: 065
     Dates: start: 20140512
  10. LAROXYL [Concomitant]
     Active Substance: AMITRIPTYLINE
     Dosage: 3 DROPS
     Route: 065
     Dates: start: 20140506, end: 20140519
  11. PARACETAMOL [Concomitant]
     Active Substance: ACETAMINOPHEN
     Route: 065
     Dates: start: 20140512

REACTIONS (1)
  - General physical health deterioration [Recovered/Resolved]

NARRATIVE: CASE EVENT DATE: 20140520
